FAERS Safety Report 14532506 (Version 1)
Quarter: 2018Q1

REPORT INFORMATION
  Report Type: Spontaneous
  Country: US (occurrence: US)
  Receive Date: 20180214
  Receipt Date: 20180214
  Transmission Date: 20180509
  Serious: Yes (Other)
  Sender: FDA-Public Use
  Company Number: US-GLAXOSMITHKLINE-US2018022196

PATIENT

DRUGS (1)
  1. TUMS CHEWY BITES [Suspect]
     Active Substance: CALCIUM CARBONATE
     Indication: ABDOMINAL PAIN UPPER
     Dosage: TWENTY AT ONCE

REACTIONS (7)
  - Oropharyngeal discomfort [Unknown]
  - Dyspepsia [Unknown]
  - Overdose [Unknown]
  - Product physical consistency issue [None]
  - Choking [Unknown]
  - Gastrointestinal pain [Unknown]
  - Intentional overdose [None]
